FAERS Safety Report 10314112 (Version 1)
Quarter: 2014Q3

REPORT INFORMATION
  Report Type: Spontaneous
  Country: PT (occurrence: None)
  Receive Date: 20140716
  Receipt Date: 20140716
  Transmission Date: 20150326
  Serious: Yes (Life-Threatening, Hospitalization, Other)
  Sender: FDA-Public Use
  Company Number: IMP_07719_2014

PATIENT
  Age: 37 Year
  Sex: Female

DRUGS (7)
  1. TRAZODONE [Suspect]
     Active Substance: TRAZODONE HYDROCHLORIDE
     Indication: BIPOLAR I DISORDER
  2. RISPERIDONE (RISPERIDONE) [Suspect]
     Active Substance: RISPERIDONE
     Indication: BIPOLAR I DISORDER
  3. QUETIAPINE [Concomitant]
     Active Substance: QUETIAPINE
  4. VALPROATE SEMISODIUM (VALPROATE SEMISODIUM) [Suspect]
     Active Substance: DIVALPROEX SODIUM
     Indication: BIPOLAR I DISORDER
  5. LORAZEPAM (LORAZEPAM) [Suspect]
     Active Substance: LORAZEPAM
     Indication: BIPOLAR I DISORDER
     Dosage: 3.5 MG [1 MG ONCE A DAY, 2.5 MG BEFORE BEDTIME]
  6. OLANZAPINE. [Concomitant]
     Active Substance: OLANZAPINE
  7. BIPERIDEN (BIPERIDEN) (BIPERIDIEN) [Suspect]
     Active Substance: BIPERIDEN
     Indication: BIPOLAR I DISORDER

REACTIONS (10)
  - Therapy cessation [None]
  - Gliosis [None]
  - Mania [None]
  - Food interaction [None]
  - Refusal of treatment by patient [None]
  - Toxic encephalopathy [None]
  - Akathisia [None]
  - Hyperammonaemic encephalopathy [None]
  - C-reactive protein increased [None]
  - Drug interaction [None]
